FAERS Safety Report 24041382 (Version 1)
Quarter: 2024Q3

REPORT INFORMATION
  Report Type: Spontaneous
  Country: US (occurrence: US)
  Receive Date: 20240702
  Receipt Date: 20240702
  Transmission Date: 20241016
  Serious: No
  Sender: SAREPTA THERAPEUTICS
  Company Number: US-SAREPTA THERAPEUTICS INC.-SRP2023-003699

PATIENT
  Age: 24 Year
  Sex: Male
  Weight: 45.351 kg

DRUGS (1)
  1. EXONDYS 51 [Suspect]
     Active Substance: ETEPLIRSEN
     Indication: Duchenne muscular dystrophy
     Dosage: 1200 MILLIGRAM, WEEKLY
     Route: 042
     Dates: start: 20180117, end: 20230805

REACTIONS (3)
  - Intentional dose omission [Unknown]
  - Therapy interrupted [Unknown]
  - No adverse event [Unknown]

NARRATIVE: CASE EVENT DATE: 20230811
